FAERS Safety Report 10499688 (Version 2)
Quarter: 2014Q4

REPORT INFORMATION
  Report Type: Spontaneous
  Country: US (occurrence: US)
  Receive Date: 20141006
  Receipt Date: 20141006
  Transmission Date: 20150528
  Serious: No
  Sender: FDA-Public Use
  Company Number: US-AMGEN INC.-USASP2014045017

PATIENT
  Age: 67 Year
  Sex: Female
  Weight: 77.55 kg

DRUGS (1)
  1. PROLIA [Suspect]
     Active Substance: DENOSUMAB
     Indication: OSTEOPOROSIS
     Dosage: UNK
     Route: 058
     Dates: start: 20130709, end: 20130709

REACTIONS (2)
  - Influenza like illness [Recovered/Resolved]
  - Aphthous stomatitis [Recovered/Resolved]
